FAERS Safety Report 7926016-6 (Version None)
Quarter: 2011Q4

REPORT INFORMATION
  Report Type: 
  Country: None (occurrence: None)
  Receive Date: 20111118
  Receipt Date: 20110415
  Transmission Date: 20120403
  Serious: No
  Sender: FDA-Public Use
  Company Number: US-AMGEN-USASP2011020160

PATIENT
  Age: 26 Year
  Sex: Female

DRUGS (1)
  1. ENBREL [Suspect]
     Indication: RHEUMATOID ARTHRITIS
     Dosage: 50 MG, QWK
     Dates: start: 19981101

REACTIONS (5)
  - PAIN IN EXTREMITY [None]
  - INJECTION SITE SWELLING [None]
  - MUSCULOSKELETAL PAIN [None]
  - INJECTION SITE WARMTH [None]
  - INJECTION SITE ERYTHEMA [None]
